FAERS Safety Report 6291663-7 (Version None)
Quarter: 2009Q3

REPORT INFORMATION
  Report Type: 
  Country: None (occurrence: None)
  Receive Date: 20090730
  Receipt Date: 20090730
  Transmission Date: 20100115
  Serious: Yes (Other)
  Sender: FDA-Public Use
  Company Number: None

PATIENT
  Age: 38 Year
  Sex: Female
  Weight: 113.3993 kg

DRUGS (3)
  1. ZOLOFT [Suspect]
     Indication: MAJOR DEPRESSION
     Dosage: 200 MG, ONCE DAILY, PO
     Route: 048
     Dates: start: 19940101, end: 20000401
  2. CYMBALTA [Suspect]
     Indication: FIBROMYALGIA
     Dosage: 60 MG, ONCE DAILY, PO
     Route: 048
     Dates: start: 20070401, end: 20090729
  3. CYMBALTA [Suspect]
     Indication: MAJOR DEPRESSION
     Dosage: 60 MG, ONCE DAILY, PO
     Route: 048
     Dates: start: 20070401, end: 20090729

REACTIONS (7)
  - AGITATION [None]
  - ANTIPSYCHOTIC DRUG LEVEL ABOVE THERAPEUTIC [None]
  - BIPOLAR I DISORDER [None]
  - CONVULSION [None]
  - DRUG WITHDRAWAL SYNDROME [None]
  - HALLUCINATION, AUDITORY [None]
  - PARAESTHESIA [None]
